FAERS Safety Report 19006833 (Version 5)
Quarter: 2024Q1

REPORT INFORMATION
  Report Type: Spontaneous
  Country: AT (occurrence: AT)
  Receive Date: 20210315
  Receipt Date: 20240301
  Transmission Date: 20240410
  Serious: Yes (Hospitalization)
  Sender: FDA-Public Use
  Company Number: AT-ROCHE-2777644

PATIENT
  Age: 42 Year
  Sex: Female
  Weight: 60 kg

DRUGS (54)
  1. XGEVA [Suspect]
     Active Substance: DENOSUMAB
     Indication: Breast cancer
     Dosage: 120 MILLIGRAM, QMO
     Route: 058
     Dates: start: 201611, end: 20181129
  2. XGEVA [Suspect]
     Active Substance: DENOSUMAB
     Dosage: 120 MILLIGRAM, QMO
     Route: 058
     Dates: start: 20190319, end: 201904
  3. TRASTUZUMAB [Suspect]
     Active Substance: TRASTUZUMAB
     Indication: Breast cancer
     Dosage: 600 MILLIGRAM, Q3WK
     Route: 042
     Dates: start: 20180503
  4. HERCEPTIN [Suspect]
     Active Substance: TRASTUZUMAB
     Indication: Breast cancer
     Dosage: 600 MILLIGRAM, Q3WK
     Route: 058
     Dates: start: 20180503, end: 20190502
  5. HERCEPTIN [Suspect]
     Active Substance: TRASTUZUMAB
     Indication: HER2 positive breast cancer
     Dosage: 600 MILLIGRAM, Q3WK
     Route: 058
     Dates: start: 20190509, end: 20191227
  6. PERJETA [Suspect]
     Active Substance: PERTUZUMAB
     Indication: HER2 positive breast cancer
     Dosage: 420 MILLIGRAM, Q3WK
     Route: 058
     Dates: start: 201811, end: 201811
  7. PERJETA [Suspect]
     Active Substance: PERTUZUMAB
     Indication: Breast cancer
     Dosage: 840 MILLIGRAM, Q3WK, (MOST RECENT DOSE PRIOR TO THE EVENT: 9/MAY/2019)
     Route: 058
     Dates: start: 20181122
  8. PERJETA [Suspect]
     Active Substance: PERTUZUMAB
     Dosage: 420 MILLIGRAM, Q3WK
     Route: 058
     Dates: start: 20181213, end: 20190502
  9. PERJETA [Suspect]
     Active Substance: PERTUZUMAB
     Dosage: 420 MILLIGRAM, Q3WK
     Route: 058
     Dates: start: 201811
  10. PERJETA [Suspect]
     Active Substance: PERTUZUMAB
     Dosage: 840 MILLIGRAM, Q3WK, (MOST RECENT DOSE PRIOR TO THE EVENT: 9/MAY/2019)
     Route: 042
     Dates: start: 20181122, end: 20181122
  11. PERJETA [Suspect]
     Active Substance: PERTUZUMAB
     Dosage: 420 MILLIGRAM, Q3WK
     Route: 042
     Dates: start: 201811, end: 201811
  12. KADCYLA [Suspect]
     Active Substance: ADO-TRASTUZUMAB EMTANSINE
     Indication: Breast cancer
     Dosage: 3.6 MILLIGRAM/KILOGRAM, Q4WK (MOST RECENT DOSE PRIOR TO THE EVENT ON 24/APR/2017, 21/AUG/2017)
     Route: 042
     Dates: start: 20161114, end: 20170424
  13. KADCYLA [Suspect]
     Active Substance: ADO-TRASTUZUMAB EMTANSINE
     Indication: HER2 positive breast cancer
     Dosage: 3.6 MILLIGRAM/KILOGRAM, Q4WK (MOST RECENT DOSE PRIOR TO THE EVENT ON 24/APR/2017, 21/AUG/2017)
     Route: 042
     Dates: start: 20170821, end: 20171120
  14. KADCYLA [Suspect]
     Active Substance: ADO-TRASTUZUMAB EMTANSINE
     Dosage: 3.6 MILLIGRAM/KILOGRAM, Q4WK (MOST RECENT DOSE PRIOR TO THE EVENT ON 24/APR/2017, 21/AUG/2017)
     Route: 042
     Dates: start: 20161114, end: 20170522
  15. FEMARA [Suspect]
     Active Substance: LETROZOLE
     Indication: Breast cancer
     Dosage: 2.5 MILLIGRAM, QD (MOST RECENT DOSE 25/FEB/2020)
     Route: 048
     Dates: start: 20180426, end: 20200225
  16. FEMARA [Suspect]
     Active Substance: LETROZOLE
     Indication: HER2 positive breast cancer
  17. LEUPROLIDE ACETATE [Suspect]
     Active Substance: ISOPROPYL ALCOHOL\LEUPROLIDE ACETATE
     Indication: Breast cancer
     Dosage: 11.25 MILLIGRAM, Q3MONTHS
     Route: 058
     Dates: start: 201804
  18. LEUPROLIDE ACETATE [Suspect]
     Active Substance: ISOPROPYL ALCOHOL\LEUPROLIDE ACETATE
     Indication: HER2 positive breast cancer
  19. LETROZOLE [Suspect]
     Active Substance: LETROZOLE
     Indication: Breast cancer
     Dosage: 2.5 MILLIGRAM, QD
     Route: 048
     Dates: start: 20180426
  20. TRENANTONE [Suspect]
     Active Substance: LEUPROLIDE ACETATE
     Indication: Breast cancer
     Dosage: 11.25 MILLIGRAM, Q3MO (MOST RECENT DOSE 25/FEB/2020)
     Route: 058
     Dates: start: 201804, end: 20200225
  21. TRENANTONE [Suspect]
     Active Substance: LEUPROLIDE ACETATE
     Indication: HER2 positive breast cancer
  22. LAFENE [Concomitant]
     Indication: General physical health deterioration
     Dosage: 12 MILLIGRAM
     Dates: start: 20190421, end: 20200224
  23. LAFENE [Concomitant]
     Indication: Spinal pain
     Dosage: 25 MICROGRAM
     Dates: start: 20200225, end: 20200417
  24. LAFENE [Concomitant]
     Dosage: 12 UG/HR
     Dates: start: 20181113
  25. ZOFRAN [Concomitant]
     Active Substance: ONDANSETRON HYDROCHLORIDE
     Indication: Nausea
     Dosage: 8 MILLIGRAM
     Dates: start: 20161115, end: 20200417
  26. ZOFRAN [Concomitant]
     Active Substance: ONDANSETRON HYDROCHLORIDE
     Indication: Vomiting
     Dosage: 4 MILLIGRAM, QD ONGOING = NOT CHECKED
     Dates: start: 20200228, end: 20200228
  27. POLYETHYLENE GLYCOL 3350\POTASSIUM CHLORIDE\SODIUM BICARBONATE\SODIUM [Concomitant]
     Active Substance: POLYETHYLENE GLYCOL 3350\POTASSIUM CHLORIDE\SODIUM BICARBONATE\SODIUM CHLORIDE
     Indication: Nausea
     Dosage: 13.8 GRAM, BID
     Dates: start: 20200306, end: 20200311
  28. POLYETHYLENE GLYCOL 3350\POTASSIUM CHLORIDE\SODIUM BICARBONATE\SODIUM [Concomitant]
     Active Substance: POLYETHYLENE GLYCOL 3350\POTASSIUM CHLORIDE\SODIUM BICARBONATE\SODIUM CHLORIDE
     Indication: Vomiting
  29. ACETAMINOPHEN [Concomitant]
     Active Substance: ACETAMINOPHEN
     Indication: Vomiting
     Dosage: 1000 MILLIGRAM, QD ONGOING = NOT CHECKED
     Dates: start: 20200228, end: 20200228
  30. ACETAMINOPHEN [Concomitant]
     Active Substance: ACETAMINOPHEN
     Indication: Nausea
  31. ACETAMINOPHEN [Concomitant]
     Active Substance: ACETAMINOPHEN
     Indication: Metastases to central nervous system
     Dosage: 500 MILLIGRAM (ONGOING = NOT CHECKED)
     Dates: start: 20170609, end: 20200417
  32. Novalgin [Concomitant]
     Indication: Product used for unknown indication
     Dosage: 30 GLT DROPS, Q6H
     Dates: start: 20181112, end: 20181116
  33. Novalgin [Concomitant]
     Dosage: 30 GLT DROPS (ONGOING = NOT CHECKED)
     Dates: start: 20181117, end: 20200417
  34. Novalgin [Concomitant]
     Dosage: 35 GTT DROPS (0.25 DAY)
     Dates: start: 20181112, end: 20181116
  35. FRAGMIN [Concomitant]
     Active Substance: DALTEPARIN SODIUM
     Indication: Product used for unknown indication
     Dosage: UNK, QD
     Dates: start: 20200228, end: 20200311
  36. Miranax [Concomitant]
     Indication: Product used for unknown indication
     Dosage: 550 MILLIGRAM
     Dates: start: 20161115, end: 20200417
  37. ZOLPIDEM [Concomitant]
     Active Substance: ZOLPIDEM TARTRATE
     Indication: Vomiting
     Dosage: 10 MILLIGRAM, ONGOING = NOT CHECKED
     Dates: start: 20200228, end: 20200417
  38. ZOLPIDEM [Concomitant]
     Active Substance: ZOLPIDEM TARTRATE
     Indication: Nausea
  39. EMEND [Concomitant]
     Active Substance: APREPITANT
     Indication: Product used for unknown indication
     Dosage: 80 MILLIGRAM, ONGOING = NOT CHECKED
     Dates: start: 20161115, end: 20200417
  40. MEFENAMIC ACID [Concomitant]
     Active Substance: MEFENAMIC ACID
     Indication: Product used for unknown indication
     Dosage: 500 MILLIGRAM
     Dates: start: 20170315, end: 20200417
  41. MEFENAMIC ACID [Concomitant]
     Active Substance: MEFENAMIC ACID
     Dosage: 500 MILLIGRAM (0.33 DAY)
     Dates: start: 20181113, end: 20181120
  42. MORPHINE [Concomitant]
     Active Substance: MORPHINE
     Indication: General physical health deterioration
     Dosage: 5 MILLIGRAM
     Dates: start: 20200225, end: 20200417
  43. MORPHINE [Concomitant]
     Active Substance: MORPHINE
     Dosage: 10 MILLIGRAM, QD
     Dates: start: 20170530, end: 20200417
  44. LYRICA [Concomitant]
     Active Substance: PREGABALIN
     Indication: General physical health deterioration
     Dosage: 75 MILLIGRAM, BID
     Dates: start: 20200225, end: 20200417
  45. DEXAMETHASONE [Concomitant]
     Active Substance: DEXAMETHASONE
     Indication: Nausea
     Dosage: 40 MILLIGRAM, QD
     Dates: start: 20200229, end: 20200302
  46. DEXAMETHASONE [Concomitant]
     Active Substance: DEXAMETHASONE
     Indication: Vomiting
     Dosage: 4 MILLIGRAM, QD
     Dates: start: 20200303, end: 20200309
  47. DEXAMETHASONE [Concomitant]
     Active Substance: DEXAMETHASONE
     Dosage: 8 MILLIGRAM, BID
     Dates: start: 20170330, end: 20200417
  48. DEXAMETHASONE [Concomitant]
     Active Substance: DEXAMETHASONE
     Dosage: 40 MILLIGRAM, QD
     Dates: start: 20170530, end: 20170530
  49. Xiclav [Concomitant]
     Dosage: 1 GRAM, BID
     Dates: start: 20181113, end: 20181120
  50. AMOXICILLIN [Concomitant]
     Active Substance: AMOXICILLIN
     Dosage: UNK UNK, QD
     Dates: start: 201904, end: 201904
  51. DICLOFENAC SODIUM\ORPHENADRINE CITRATE [Concomitant]
     Active Substance: DICLOFENAC SODIUM\ORPHENADRINE CITRATE
     Dosage: 250 MILLILITER, QD
     Dates: start: 20181115, end: 20181116
  52. DICLOFENAC SODIUM\ORPHENADRINE CITRATE [Concomitant]
     Active Substance: DICLOFENAC SODIUM\ORPHENADRINE CITRATE
     Dosage: 250 MILLILITER, QD
     Dates: start: 20181112, end: 20181113
  53. VENLAFAXINE HYDROCHLORIDE [Concomitant]
     Active Substance: VENLAFAXINE HYDROCHLORIDE
     Dosage: 75 MILLIGRAM, QD
     Dates: start: 20190228
  54. MORPHINE [Concomitant]
     Active Substance: MORPHINE
     Indication: General physical health deterioration
     Dosage: UNK
     Dates: start: 20200225, end: 20200417

REACTIONS (3)
  - Post herpetic neuralgia [Not Recovered/Not Resolved]
  - Pain in extremity [Not Recovered/Not Resolved]
  - Off label use [Unknown]

NARRATIVE: CASE EVENT DATE: 20200225
